FAERS Safety Report 5236805-7 (Version None)
Quarter: 2007Q1

REPORT INFORMATION
  Report Type: 
  Country: None (occurrence: None)
  Receive Date: 20061208
  Receipt Date: 20050210
  Transmission Date: 20070707
  Serious: Yes (Other)
  Sender: FDA-Public Use
  Company Number: 2005UW02398

PATIENT
  Age: 50 Year
  Sex: Male

DRUGS (2)
  1. CRESTOR [Suspect]
     Dosage: 10 MG PO
     Route: 048
     Dates: start: 20040701
  2. SEVERAL MEDICATIONS [Concomitant]

REACTIONS (3)
  - MUSCLE ATROPHY [None]
  - MUSCLE FATIGUE [None]
  - MUSCLE INJURY [None]
